FAERS Safety Report 24415878 (Version 1)
Quarter: 2024Q4

REPORT INFORMATION
  Report Type: Report from Study
  Country: TR (occurrence: TR)
  Receive Date: 20241009
  Receipt Date: 20241009
  Transmission Date: 20250114
  Serious: Yes (Death)
  Sender: ABBVIE
  Company Number: TR-ABBVIE-5956523

PATIENT
  Age: 73 Year
  Sex: Female
  Weight: 55 kg

DRUGS (6)
  1. CARBIDOPA\LEVODOPA [Suspect]
     Active Substance: CARBIDOPA\LEVODOPA
     Indication: Parkinson^s disease
     Dosage: MORNING DOSE (ML): 7.00 CONTINUOUS DOSE (ML): 2.00 EXTRA DOSE (ML): 1.50
     Route: 050
     Dates: start: 20230502
  2. CARBIDOPA\LEVODOPA [Suspect]
     Active Substance: CARBIDOPA\LEVODOPA
  3. CARVEDILOL [Concomitant]
     Active Substance: CARVEDILOL
     Indication: Hypertension
     Dosage: 12.5 MG
     Route: 048
     Dates: start: 2020
  4. EXELON [Concomitant]
     Active Substance: RIVASTIGMINE TARTRATE
     Indication: Dementia
     Dosage: 9.5 MG
     Route: 062
     Dates: start: 2022, end: 202402
  5. BENIDIPINE HYDROCHLORIDE [Concomitant]
     Active Substance: BENIDIPINE HYDROCHLORIDE
     Indication: Hypertension
     Dosage: FORM STRENGTH UNITS: 4 MILLIGRAM
     Route: 048
     Dates: start: 2020
  6. LUSTRAL [Concomitant]
     Active Substance: SERTRALINE HYDROCHLORIDE
     Indication: Depression
     Dosage: FORM STRENGTH UNITS: 100 MILLIGRAM
     Route: 048
     Dates: start: 2000

REACTIONS (1)
  - Diabetic foot [Fatal]

NARRATIVE: CASE EVENT DATE: 20240501
